FAERS Safety Report 7917298-5 (Version None)
Quarter: 2011Q4

REPORT INFORMATION
  Report Type: 
  Country: None (occurrence: None)
  Receive Date: 20111114
  Receipt Date: 20111028
  Transmission Date: 20120403
  Serious: Yes (Death, Hospitalization)
  Sender: FDA-Public Use
  Company Number: TCI2011A04219

PATIENT
  Age: 69 Year
  Sex: Male

DRUGS (4)
  1. AMLODIPINE [Concomitant]
  2. ACTOS [Suspect]
     Indication: DIABETES MELLITUS
     Dosage: 15 MG (15 MG, 1 D)
     Dates: start: 20000828, end: 20090420
  3. JANUVIA [Concomitant]
  4. TRICOR [Concomitant]

REACTIONS (1)
  - BLADDER CANCER [None]
